FAERS Safety Report 22312819 (Version 1)
Quarter: 2023Q2

REPORT INFORMATION
  Report Type: Report from Study
  Country: IT (occurrence: IT)
  Receive Date: 20230512
  Receipt Date: 20230512
  Transmission Date: 20230721
  Serious: Yes (Hospitalization)
  Sender: FDA-Public Use
  Company Number: None

PATIENT
  Age: 94 Year
  Sex: Female

DRUGS (4)
  1. TICLOPIDINE HYDROCHLORIDE [Suspect]
     Active Substance: TICLOPIDINE HYDROCHLORIDE
     Indication: Thrombosis prophylaxis
     Dosage: DOSAGE: 2 , UNIT OF MEASURE: UNIT DOSING , FREQUENCY OF ADMINISTRATION: DAILY , ROUTE OF ADMINISTRAT
     Route: 048
  2. SIMVASTATIN [Concomitant]
     Active Substance: SIMVASTATIN
     Indication: Product used for unknown indication
     Dosage: DOSAGE: 1 UNIT OF MEASURE: DOSING UNIT ROUTE OF ADMINISTRATION: ORAL
     Route: 048
     Dates: end: 20221004
  3. TRAZODONE HYDROCHLORIDE [Concomitant]
     Active Substance: TRAZODONE HYDROCHLORIDE
     Indication: Product used for unknown indication
     Dosage: DOSAGE: 12 UNIT OF MEASUREMENT: DROPS. ROUTE OF ADMINISTRATION: ORAL
     Route: 048
  4. ENALAPRIL [Concomitant]
     Active Substance: ENALAPRIL
     Indication: Hypertension
     Dosage: DOSAGE: 1 , UNIT OF MEASURE: DOSAGE UNIT , ROUTE OF ADMINISTRATION: ORAL
     Route: 048

REACTIONS (2)
  - Haematoma [Recovering/Resolving]
  - Blood loss anaemia [Recovering/Resolving]

NARRATIVE: CASE EVENT DATE: 20220930
